FAERS Safety Report 11636762 (Version 2)
Quarter: 2015Q4

REPORT INFORMATION
  Report Type: Spontaneous
  Country: PE (occurrence: PE)
  Receive Date: 20151016
  Receipt Date: 20151103
  Transmission Date: 20160304
  Serious: Yes (Hospitalization)
  Sender: FDA-Public Use
  Company Number: PE-PFIZER INC-2015336927

PATIENT
  Age: 86 Year
  Sex: Male

DRUGS (1)
  1. XALATAN [Suspect]
     Active Substance: LATANOPROST
     Dosage: 2 GTT (ONE DROP IN EACH EYE), DAILY
     Route: 047

REACTIONS (1)
  - Malaise [Not Recovered/Not Resolved]
